FAERS Safety Report 9800122 (Version 3)
Quarter: 2015Q3

REPORT INFORMATION
  Report Type: Spontaneous
  Country: US (occurrence: US)
  Receive Date: 20140106
  Receipt Date: 20150806
  Transmission Date: 20151125
  Serious: No
  Sender: FDA-Public Use
  Company Number: US-GILEAD-2010-0032430

PATIENT
  Age: 40 Year
  Sex: Male
  Weight: 65.77 kg

DRUGS (10)
  1. LETAIRIS [Suspect]
     Active Substance: AMBRISENTAN
     Indication: PULMONARY ARTERIAL HYPERTENSION
     Route: 048
     Dates: start: 20100225
  2. WARFARIN [Concomitant]
     Active Substance: WARFARIN
  3. PREZISTA [Concomitant]
     Active Substance: DARUNAVIR ETHANOLATE
  4. LIPITOR [Concomitant]
     Active Substance: ATORVASTATIN CALCIUM
  5. NORVIR [Concomitant]
     Active Substance: RITONAVIR
  6. VIREAD [Concomitant]
     Active Substance: TENOFOVIR DISOPROXIL FUMARATE
  7. LUNESTA [Concomitant]
     Active Substance: ESZOPICLONE
  8. REVATIO [Concomitant]
     Active Substance: SILDENAFIL CITRATE
  9. ISENTRESS [Concomitant]
     Active Substance: RALTEGRAVIR POTASSIUM
  10. CHANTIX [Concomitant]
     Active Substance: VARENICLINE TARTRATE

REACTIONS (1)
  - Liver function test abnormal [Unknown]
